FAERS Safety Report 14879559 (Version 2)
Quarter: 2019Q1

REPORT INFORMATION
  Report Type: Spontaneous
  Country: SE (occurrence: SE)
  Receive Date: 20180511
  Receipt Date: 20190105
  Transmission Date: 20190417
  Serious: Yes (Other)
  Sender: FDA-Public Use
  Company Number: SE-ACCORD-066884

PATIENT
  Age: 39 Year
  Sex: Female

DRUGS (1)
  1. SERTRALINE ACCORD [Suspect]
     Active Substance: SERTRALINE HYDROCHLORIDE
     Indication: DEPRESSED MOOD
     Dosage: STRENGTH: 50 MG?NUMBER OF PACKS: 1
     Route: 048
     Dates: start: 20161010, end: 20180429

REACTIONS (3)
  - Anticholinergic syndrome [Unknown]
  - Product substitution issue [Unknown]
  - Dry mouth [Unknown]

NARRATIVE: CASE EVENT DATE: 20180315
